FAERS Safety Report 10892744 (Version 1)
Quarter: 2015Q1

REPORT INFORMATION
  Report Type: Spontaneous
  Country: NO (occurrence: NO)
  Receive Date: 20150306
  Receipt Date: 20150306
  Transmission Date: 20150721
  Serious: Yes (Life-Threatening)
  Sender: FDA-Public Use
  Company Number: NO-WATSON-2015-04222

PATIENT
  Age: 44 Year
  Sex: Female

DRUGS (8)
  1. TAZOCIN [Concomitant]
     Active Substance: PIPERACILLIN SODIUM\TAZOBACTAM SODIUM
     Indication: PRODUCT USED FOR UNKNOWN INDICATION
     Dosage: UNK
     Route: 065
     Dates: start: 20150207
  2. CURACIT [Concomitant]
     Active Substance: SUCCINYLCHOLINE CHLORIDE
     Indication: STUPOR
     Dosage: 100 MG, UNK
     Route: 065
     Dates: start: 20150207
  3. PROPOFOL. [Concomitant]
     Active Substance: PROPOFOL
     Indication: STUPOR
     Dosage: 150 MG, UNK
     Route: 065
     Dates: start: 20150207
  4. KETORAX [Concomitant]
     Active Substance: KETOBEMIDONE HYDROCHLORIDE
     Indication: PRODUCT USED FOR UNKNOWN INDICATION
     Dosage: UNK
     Route: 065
     Dates: start: 20150207
  5. NORCURON [Concomitant]
     Active Substance: VECURONIUM BROMIDE
     Indication: FEELING OF RELAXATION
     Dosage: 6 MG, UNK
     Route: 065
     Dates: start: 20150207
  6. FENTANYL (UNKNOWN) [Suspect]
     Active Substance: FENTANYL
     Indication: STUPOR
     Dosage: 92 ?G, UNK. 1 BOLUS
     Route: 042
     Dates: start: 20150207
  7. KETALAR [Concomitant]
     Active Substance: KETAMINE HYDROCHLORIDE
     Indication: STUPOR
     Dosage: UNK
     Route: 065
     Dates: start: 20150207
  8. MIDAZOLAM [Concomitant]
     Active Substance: MIDAZOLAM\MIDAZOLAM HYDROCHLORIDE
     Indication: STUPOR
     Dosage: UNK
     Route: 065
     Dates: start: 20150207

REACTIONS (3)
  - Respiratory failure [Recovering/Resolving]
  - Seizure [Recovering/Resolving]
  - Hypotonia [Recovering/Resolving]

NARRATIVE: CASE EVENT DATE: 20150207
